FAERS Safety Report 13905110 (Version 1)
Quarter: 2017Q3

REPORT INFORMATION
  Report Type: Spontaneous
  Country: US (occurrence: None)
  Receive Date: 20170824
  Receipt Date: 20170824
  Transmission Date: 20171127
  Serious: No
  Sender: FDA-Public Use
  Company Number: None

PATIENT
  Age: 14 Year
  Sex: Female

DRUGS (1)
  1. ENBREL [Suspect]
     Active Substance: ETANERCEPT
     Indication: PSORIASIS
     Dosage: DURING SECOND MONTH OF THERAPY 50MG EVERY WEEK SQ
     Route: 058

REACTIONS (2)
  - Muscle strain [None]
  - Arthralgia [None]

NARRATIVE: CASE EVENT DATE: 20170815
